FAERS Safety Report 22276766 (Version 2)
Quarter: 2023Q2

REPORT INFORMATION
  Report Type: Report from Study
  Country: AR (occurrence: AR)
  Receive Date: 20230503
  Receipt Date: 20230604
  Transmission Date: 20230721
  Serious: No
  Sender: FDA-Public Use
  Company Number: AR-JNJFOC-20230439367

PATIENT
  Age: 63 Year
  Sex: Female
  Weight: 85 kg

DRUGS (1)
  1. SIMPONI [Suspect]
     Active Substance: GOLIMUMAB
     Indication: Rheumatoid arthritis
     Dosage: STRENGTH: 50.00 MG / 0.50 ML
     Route: 058
     Dates: start: 20220905

REACTIONS (4)
  - Device failure [Unknown]
  - Product complaint [Unknown]
  - Product dose omission issue [Unknown]
  - Panic disorder [Unknown]

NARRATIVE: CASE EVENT DATE: 20220101
